FAERS Safety Report 6420403-3 (Version None)
Quarter: 2009Q4

REPORT INFORMATION
  Report Type: 
  Country: None (occurrence: None)
  Receive Date: 20091029
  Receipt Date: 20091019
  Transmission Date: 20100525
  Serious: Yes (Other)
  Sender: FDA-Public Use
  Company Number: US-ELI_LILLY_AND_COMPANY-US200907003757

PATIENT
  Age: 44 Year
  Sex: Male

DRUGS (11)
  1. CYMBALTA [Suspect]
     Indication: DEPRESSION
     Dosage: 90 MG, UNK
     Dates: start: 20070501
  2. CYMBALTA [Suspect]
     Dosage: 60 MG, UNK
  3. CYMBALTA [Suspect]
     Dosage: 30 MG, UNK
     Dates: end: 20090701
  4. MOBIC [Concomitant]
  5. LASIX [Concomitant]
  6. LIDODERM [Concomitant]
  7. METHADONE [Concomitant]
  8. ALBUTEROL [Concomitant]
  9. SUBOXONE [Concomitant]
     Dosage: 1 D/F, UNK
  10. LUNESTA [Concomitant]
     Dosage: 1 D/F, UNK
  11. KLONOPIN [Concomitant]
     Dosage: 1 D/F, UNK

REACTIONS (1)
  - ARRHYTHMIA [None]
